FAERS Safety Report 6762076-6 (Version None)
Quarter: 2010Q2

REPORT INFORMATION
  Report Type: 
  Country: None (occurrence: None)
  Receive Date: 20100520
  Receipt Date: 20100506
  Transmission Date: 20101027
  Serious: Yes (Hospitalization, Other)
  Sender: FDA-Public Use
  Company Number: 20100506CINRY1475

PATIENT
  Age: 69 Year
  Sex: Male

DRUGS (11)
  1. CINRYZE [Suspect]
     Indication: HEREDITARY ANGIOEDEMA
     Dosage: (1000 UNIT,2 IN WK), INTRAVENOUS
     Route: 042
     Dates: start: 20100301
  2. CINRYZE [Suspect]
     Indication: PROPHYLAXIS
     Dosage: (1000 UNIT,2 IN WK), INTRAVENOUS
     Route: 042
     Dates: start: 20100301
  3. BACITRACIN [Concomitant]
  4. ASPIRIN [Concomitant]
  5. PLAVIX [Concomitant]
  6. NEXIUM [Concomitant]
  7. FEXOFENADINE HCL [Concomitant]
  8. AMLODIPINE [Concomitant]
  9. TOPROL-XL [Concomitant]
  10. PROMETHAZINE [Concomitant]
  11. LUMIGAN [Concomitant]

REACTIONS (12)
  - ABDOMINAL PAIN [None]
  - ALANINE AMINOTRANSFERASE INCREASED [None]
  - ASCITES [None]
  - ASPARTATE AMINOTRANSFERASE INCREASED [None]
  - CHILLS [None]
  - DIABETES MELLITUS [None]
  - HEREDITARY ANGIOEDEMA [None]
  - LUNG NEOPLASM [None]
  - NO THERAPEUTIC RESPONSE [None]
  - PAIN [None]
  - PYREXIA [None]
  - VOMITING [None]
